FAERS Safety Report 19438139 (Version 1)
Quarter: 2021Q2

REPORT INFORMATION
  Report Type: Spontaneous
  Country: SE (occurrence: SE)
  Receive Date: 20210618
  Receipt Date: 20210618
  Transmission Date: 20210717
  Serious: Yes (Hospitalization)
  Sender: FDA-Public Use
  Company Number: SE-MALLINCKRODT PHARMACEUTICALS-T202102649

PATIENT

DRUGS (2)
  1. ACD?A [Concomitant]
     Active Substance: ANHYDROUS CITRIC ACID\DEXTROSE MONOHYDRATE\SODIUM CITRATE
     Indication: PRODUCT USED FOR UNKNOWN INDICATION
     Dosage: UNK
     Route: 065
  2. UVADEX [Suspect]
     Active Substance: METHOXSALEN
     Indication: GRAFT VERSUS HOST DISEASE
     Dosage: UNK (EXTRACORPOREAL)
     Route: 050
     Dates: start: 202104

REACTIONS (2)
  - Generalised tonic-clonic seizure [Recovered/Resolved]
  - Product use in unapproved indication [Not Recovered/Not Resolved]

NARRATIVE: CASE EVENT DATE: 202104
